FAERS Safety Report 25880632 (Version 1)
Quarter: 2025Q4

REPORT INFORMATION
  Report Type: Report from Study
  Country: US (occurrence: US)
  Receive Date: 20251004
  Receipt Date: 20251004
  Transmission Date: 20260117
  Serious: Yes (Hospitalization, Other)
  Sender: AMGEN
  Company Number: US-AMGEN-USASL2025189188

PATIENT
  Age: 73 Year
  Sex: Male

DRUGS (1)
  1. REPATHA [Suspect]
     Active Substance: EVOLOCUMAB
     Indication: Cardiovascular disorder
     Dosage: 140 MILLIGRAM, Q2WK
     Route: 065
     Dates: start: 202507

REACTIONS (5)
  - Dyspnoea [Not Recovered/Not Resolved]
  - Cardiac pacemaker insertion [Unknown]
  - Coronary artery bypass [Unknown]
  - Stent placement [Unknown]
  - Pruritus [Unknown]

NARRATIVE: CASE EVENT DATE: 20250701
